FAERS Safety Report 11761181 (Version 2)
Quarter: 2017Q2

REPORT INFORMATION
  Report Type: Spontaneous
  Country: US (occurrence: US)
  Receive Date: 20151120
  Receipt Date: 20170424
  Transmission Date: 20170829
  Serious: Yes (Other)
  Sender: FDA-Public Use
  Company Number: US-SA-2015SA183094

PATIENT
  Age: 78 Year
  Sex: Male

DRUGS (6)
  1. DOCETAXEL. [Suspect]
     Active Substance: DOCETAXEL
     Indication: PROSTATE CANCER METASTATIC
     Dosage: EVERY 3 WEEK DOSING (75 MG/M2, TOTAL DOSE = 134 MG)
     Route: 065
  2. BICALUTAMIDE. [Interacting]
     Active Substance: BICALUTAMIDE
     Indication: ANTIANDROGEN THERAPY
     Route: 065
  3. CARVEDILOL. [Interacting]
     Active Substance: CARVEDILOL
     Route: 065
  4. BICALUTAMIDE. [Interacting]
     Active Substance: BICALUTAMIDE
     Indication: PROSTATE CANCER METASTATIC
     Route: 065
  5. LEUPROLIDE [Concomitant]
     Active Substance: LEUPROLIDE
     Indication: ANTIANDROGEN THERAPY
  6. DRONEDARONE [Interacting]
     Active Substance: DRONEDARONE
     Route: 065

REACTIONS (12)
  - Biliary dilatation [Unknown]
  - Alanine aminotransferase increased [Unknown]
  - Blood bilirubin increased [Unknown]
  - Drug interaction [Unknown]
  - Bile duct obstruction [Unknown]
  - Cholestasis [Unknown]
  - Blood alkaline phosphatase increased [Unknown]
  - Aspartate aminotransferase increased [Unknown]
  - Computerised tomogram abnormal [Unknown]
  - Drug level increased [Unknown]
  - Nuclear magnetic resonance imaging abnormal [Unknown]
  - Cholangitis sclerosing [Unknown]
